FAERS Safety Report 10678680 (Version 1)
Quarter: 2014Q4

REPORT INFORMATION
  Report Type: Spontaneous
  Country: US (occurrence: None)
  Receive Date: 20141223
  Receipt Date: 20141223
  Transmission Date: 20150529
  Serious: No
  Sender: FDA-Public Use
  Company Number: 14-02602

PATIENT
  Age: 81 Year
  Weight: 53.52 kg

DRUGS (4)
  1. ALBUTEROL SULFATE 0.083% INHALATION SOLUTION [Suspect]
     Active Substance: ALBUTEROL SULFATE
     Indication: PNEUMONIA
     Dosage: 1 VIAL TID 054
     Dates: start: 20141014, end: 20141017
  2. ALBUTEROL SULFATE 0.083% INHALATION SOLUTION [Suspect]
     Active Substance: ALBUTEROL SULFATE
     Indication: PLEURISY
     Dosage: 1 VIAL TID 054
     Dates: start: 20141014, end: 20141017
  3. ANTIBIOTICS [Concomitant]
     Active Substance: UNSPECIFIED INGREDIENT
  4. PREDNISONE. [Concomitant]
     Active Substance: PREDNISONE

REACTIONS (8)
  - Hallucination, tactile [None]
  - Sputum increased [None]
  - Anaphylactic reaction [None]
  - Cough [None]
  - Asthma [None]
  - Wrong technique in drug usage process [None]
  - Tremor [None]
  - Chills [None]

NARRATIVE: CASE EVENT DATE: 20141015
